FAERS Safety Report 23317311 (Version 3)
Quarter: 2024Q4

REPORT INFORMATION
  Report Type: Spontaneous
  Country: US (occurrence: US)
  Receive Date: 20231219
  Receipt Date: 20241017
  Transmission Date: 20250114
  Serious: No
  Sender: ROCHE
  Company Number: US-ROCHE-3432323

PATIENT
  Age: 42 Year
  Sex: Male
  Weight: 82.1 kg

DRUGS (3)
  1. HEMLIBRA [Suspect]
     Active Substance: EMICIZUMAB-KXWH
     Indication: Factor VIII deficiency
     Dosage: STRENGTH- 60MG/0.4ML
     Route: 058
     Dates: start: 202307
  2. HEMLIBRA [Suspect]
     Active Substance: EMICIZUMAB-KXWH
     Dosage: STRENGTH- 105MG/0.7 ML
     Route: 058
     Dates: start: 202307
  3. HEMLIBRA [Suspect]
     Active Substance: EMICIZUMAB-KXWH
     Dosage: 1.4 ML FROM TWO 105 MG VIAL AND 0.4 ML FROM ONE 60 MG VIAL TO OBTAIN THE TOTAL DOSE
     Route: 058
     Dates: start: 202307

REACTIONS (6)
  - Haemorrhage [Unknown]
  - Weight decreased [Unknown]
  - Eye haemorrhage [Unknown]
  - Eye injury [Unknown]
  - Joint swelling [Unknown]
  - Eye injury [Unknown]

NARRATIVE: CASE EVENT DATE: 20240217
